FAERS Safety Report 8570282-3 (Version None)
Quarter: 2012Q3

REPORT INFORMATION
  Report Type: 
  Country: None (occurrence: None)
  Receive Date: 20120803
  Receipt Date: 20120725
  Transmission Date: 20120928
  Serious: Yes (Other)
  Sender: FDA-Public Use
  Company Number: JP-GILEAD-2012-0051457

PATIENT
  Sex: Male

DRUGS (4)
  1. LAMIVUDINE [Concomitant]
     Dosage: 50MG PER DAY
     Route: 048
     Dates: start: 20120222
  2. LAMIVUDINE [Concomitant]
     Indication: HEPATITIS B
     Dosage: 100MG PER DAY
     Route: 048
     Dates: start: 20031211, end: 20120221
  3. HEPSERA [Suspect]
     Indication: HEPATITIS B
     Dosage: 10MG PER DAY
     Route: 048
     Dates: start: 20071002, end: 20120221
  4. HEPSERA [Suspect]
     Dosage: 10 MG 3 TIMES PER DAY
     Route: 048
     Dates: start: 20120221

REACTIONS (5)
  - FANCONI SYNDROME [None]
  - BLOOD ALKALINE PHOSPHATASE INCREASED [None]
  - TUBULOINTERSTITIAL NEPHRITIS [None]
  - RENAL DISORDER [None]
  - BLOOD CREATININE INCREASED [None]
